FAERS Safety Report 9337708 (Version 1)
Quarter: 2013Q2

REPORT INFORMATION
  Report Type: Spontaneous
  Country: CA (occurrence: CA)
  Receive Date: 20130607
  Receipt Date: 20130607
  Transmission Date: 20140414
  Serious: Yes (Disabling)
  Sender: FDA-Public Use
  Company Number: CA-009507513-1306CAN003523

PATIENT
  Sex: Male

DRUGS (1)
  1. VICTRELIS TRIPLE [Suspect]
     Indication: PRODUCT USED FOR UNKNOWN INDICATION
     Dosage: 150 MICROGRAM, UNK
     Route: 058

REACTIONS (2)
  - Fatigue [Unknown]
  - Impaired work ability [Unknown]
